FAERS Safety Report 21450131 (Version 1)
Quarter: 2022Q4

REPORT INFORMATION
  Report Type: Spontaneous
  Country: US (occurrence: None)
  Receive Date: 20221012
  Receipt Date: 20221012
  Transmission Date: 20230113
  Serious: No
  Sender: FDA-Public Use
  Company Number: None

PATIENT
  Age: 87 Year
  Sex: Female
  Weight: 51.26 kg

DRUGS (13)
  1. LETROZOLE [Suspect]
     Active Substance: LETROZOLE
     Indication: Breast cancer female
     Dosage: FREQUENCY : DAILY;?
     Route: 048
     Dates: start: 20210218, end: 20221011
  2. ASPIRIN [Concomitant]
     Active Substance: ASPIRIN
  3. ATORVASTATIN [Concomitant]
     Active Substance: ATORVASTATIN
  4. CANDESARTAN [Concomitant]
     Active Substance: CANDESARTAN
  5. CARBAMAZEPINE [Concomitant]
     Active Substance: CARBAMAZEPINE
  6. IBANDRONATE SODIUM [Concomitant]
     Active Substance: IBANDRONATE SODIUM
  7. METOPROLOL [Concomitant]
     Active Substance: METOPROLOL
  8. PAXLOVID [Concomitant]
     Active Substance: NIRMATRELVIR\RITONAVIR
  9. TERAZOSIN [Concomitant]
     Active Substance: TERAZOSIN HYDROCHLORIDE
  10. TRAMADOL [Concomitant]
     Active Substance: TRAMADOL
  11. TUMS [Concomitant]
     Active Substance: CALCIUM CARBONATE
  12. VITAMIN D3 [Concomitant]
     Active Substance: CHOLECALCIFEROL
  13. ZYRTEC [Concomitant]
     Active Substance: CETIRIZINE HYDROCHLORIDE

REACTIONS (1)
  - Hospice care [None]
